FAERS Safety Report 4493414-5 (Version None)
Quarter: 2004Q4

REPORT INFORMATION
  Report Type: 
  Country: None (occurrence: None)
  Receive Date: 20041102
  Receipt Date: 20041027
  Transmission Date: 20050328
  Serious: Yes (Hospitalization)
  Sender: FDA-Public Use
  Company Number: A0530402A

PATIENT
  Sex: Male

DRUGS (3)
  1. IMITREX [Suspect]
     Indication: MIGRAINE
     Dosage: ORAL
     Route: 048
  2. OXYCONTIN [Concomitant]
  3. SSRI [Concomitant]

REACTIONS (2)
  - COMA [None]
  - CONFUSIONAL STATE [None]
